FAERS Safety Report 5500004-1 (Version None)
Quarter: 2007Q4

REPORT INFORMATION
  Report Type: 
  Country: None (occurrence: None)
  Receive Date: 20071026
  Receipt Date: 20071017
  Transmission Date: 20080405
  Serious: Yes (Other)
  Sender: FDA-Public Use
  Company Number: SE-PFIZER INC-2007088184

PATIENT
  Age: 47 Year
  Sex: Female

DRUGS (1)
  1. XANOR [Suspect]
     Route: 048
     Dates: start: 19920801, end: 19930101

REACTIONS (5)
  - ANGINA PECTORIS [None]
  - CHILD ABUSE [None]
  - DISTURBANCE IN ATTENTION [None]
  - HALLUCINATION [None]
  - SPEECH DISORDER [None]
